FAERS Safety Report 4897210-6 (Version None)
Quarter: 2006Q1

REPORT INFORMATION
  Report Type: 
  Country: None (occurrence: None)
  Receive Date: 20060127
  Receipt Date: 20060117
  Transmission Date: 20060701
  Serious: Yes (Hospitalization, Other)
  Sender: FDA-Public Use
  Company Number: HQWYE262309JAN06

PATIENT
  Age: 40 Year
  Sex: Female

DRUGS (5)
  1. RAPAMUNE [Suspect]
     Indication: PROPHYLAXIS AGAINST TRANSPLANT REJECTION
     Dosage: 3 MG 1X PER 1 DAY, ORAL
     Route: 048
     Dates: start: 20031202, end: 20051201
  2. RAPAMUNE [Suspect]
     Indication: PROPHYLAXIS AGAINST TRANSPLANT REJECTION
     Dosage: 3 MG 1X PER 1 DAY, ORAL
     Route: 048
     Dates: start: 20051201
  3. ENALAPRIL MALEATE [Concomitant]
  4. AZATHIOPRINE [Concomitant]
  5. CORTICOSTEROIDS (CORTICOSTEROIDS) [Concomitant]

REACTIONS (6)
  - GASTRITIS [None]
  - HAEMODIALYSIS [None]
  - METABOLIC ACIDOSIS [None]
  - PYREXIA [None]
  - RENAL IMPAIRMENT [None]
  - URAEMIC GASTROPATHY [None]
